FAERS Safety Report 4437049-9 (Version None)
Quarter: 2004Q3

REPORT INFORMATION
  Report Type: 
  Country: None (occurrence: None)
  Receive Date: 20040830
  Receipt Date: 20040824
  Transmission Date: 20050211
  Serious: Yes (Death)
  Sender: FDA-Public Use
  Company Number: US-GLAXOSMITHKLINE-A0523499A

PATIENT
  Age: 55 Year
  Sex: Male

DRUGS (1)
  1. PAXIL [Suspect]
     Indication: STRESS SYMPTOMS
     Dosage: 10MG UNKNOWN
     Route: 048
     Dates: start: 20020801, end: 20020901

REACTIONS (8)
  - AGITATION [None]
  - ANOREXIA [None]
  - ANXIETY [None]
  - COMPLETED SUICIDE [None]
  - GUN SHOT WOUND [None]
  - HYPERHIDROSIS [None]
  - PARANOIA [None]
  - SOCIAL AVOIDANT BEHAVIOUR [None]
